FAERS Safety Report 19308799 (Version 3)
Quarter: 2021Q2

REPORT INFORMATION
  Report Type: Spontaneous
  Country: US (occurrence: US)
  Receive Date: 20210525
  Receipt Date: 20210616
  Transmission Date: 20210717
  Serious: No
  Sender: FDA-Public Use
  Company Number: US-INCYTE CORPORATION-2021IN004518

PATIENT

DRUGS (4)
  1. JAKAFI [Suspect]
     Active Substance: RUXOLITINIB
     Dosage: 5 MILLIGRAM, BID
     Route: 048
     Dates: start: 20210503
  2. CBD COMPLEX (CANNABIS SATIVA) [Suspect]
     Active Substance: CANNABIS SATIVA FLOWERING TOP
     Indication: PRODUCT USED FOR UNKNOWN INDICATION
     Route: 065
  3. JAKAFI [Suspect]
     Active Substance: RUXOLITINIB
     Indication: MYELOPROLIFERATIVE NEOPLASM
     Dosage: 5 MILLIGRAM, BID
     Route: 048
     Dates: start: 20210503
  4. THC [Suspect]
     Active Substance: DRONABINOL
     Indication: PRODUCT USED FOR UNKNOWN INDICATION
     Route: 065

REACTIONS (13)
  - Sleep disorder [Unknown]
  - Vitamin D decreased [Unknown]
  - Euphoric mood [Unknown]
  - Product solubility abnormal [Unknown]
  - Dysphagia [Unknown]
  - Energy increased [Unknown]
  - Pain [Unknown]
  - Product dose omission in error [Unknown]
  - Fatigue [Unknown]
  - Abnormal dreams [Unknown]
  - Off label use [Unknown]
  - Malaise [Unknown]
  - Dehydration [Unknown]
